FAERS Safety Report 7540054-7 (Version None)
Quarter: 2011Q2

REPORT INFORMATION
  Report Type: 
  Country: None (occurrence: None)
  Receive Date: 20110610
  Receipt Date: 20110530
  Transmission Date: 20111010
  Serious: Yes (Death, Hospitalization)
  Sender: FDA-Public Use
  Company Number: DE-TEVA-282141GER

PATIENT
  Age: 90 Year
  Sex: Female
  Weight: 56 kg

DRUGS (12)
  1. ISOKET 20 [Concomitant]
     Indication: CORONARY ARTERY DISEASE
     Dosage: 40 MILLIGRAM;
     Route: 048
     Dates: end: 20110207
  2. METRONIDAZOLE [Suspect]
     Indication: CLOSTRIDIUM DIFFICILE COLITIS
     Dosage: 1500 MILLIGRAM;
     Route: 048
     Dates: start: 20101228, end: 20110109
  3. FENTANYL [Concomitant]
     Indication: BONE PAIN
     Dosage: 1.375 MILLIGRAM; STRENGTH 25 MICROG/H
     Route: 062
     Dates: end: 20110207
  4. CORANGIN 40 RETARD [Concomitant]
     Indication: CORONARY ARTERY DISEASE
     Dosage: 80 MILLIGRAM;
     Route: 048
     Dates: end: 20110207
  5. RAMIPRIL [Concomitant]
     Indication: HYPERTENSION
     Dosage: 5 MILLIGRAM;
     Route: 048
     Dates: end: 20110207
  6. TOREM 10 [Concomitant]
     Indication: HYPERTENSION
     Dosage: 10 MILLIGRAM;
     Route: 048
     Dates: end: 20110207
  7. HUMALOG [Concomitant]
     Indication: TYPE 2 DIABETES MELLITUS
     Dosage: 14 IU (INTERNATIONAL UNIT);
     Route: 058
     Dates: end: 20110207
  8. NORVASC [Concomitant]
     Indication: HYPERTENSION
     Dosage: 10 MILLIGRAM;
     Route: 048
     Dates: end: 20110207
  9. RULID 300 MG [Suspect]
     Indication: TRACHEOBRONCHITIS
     Dosage: 300 MILLIGRAM;
     Route: 048
     Dates: start: 20101211, end: 20101221
  10. PANTOZOL 40 MG [Concomitant]
     Indication: PROPHYLAXIS AGAINST GASTROINTESTINAL ULCER
     Dosage: 40 MILLIGRAM;
     Route: 048
     Dates: end: 20110207
  11. UNACID PD ORAL FILMTABLETTEN [Suspect]
     Indication: TRACHEOBRONCHITIS
     Dosage: 1500 MILLIGRAM; 2X2 DAILY, 375 MG = 1 DF
     Route: 048
     Dates: start: 20101211, end: 20101221
  12. ASS 100 [Concomitant]
     Indication: CORONARY ARTERY DISEASE
     Dosage: 100 MILLIGRAM;
     Route: 048
     Dates: end: 20110207

REACTIONS (1)
  - CLOSTRIDIUM DIFFICILE COLITIS [None]
